FAERS Safety Report 6035659-9 (Version None)
Quarter: 2009Q1

REPORT INFORMATION
  Report Type: 
  Country: None (occurrence: None)
  Receive Date: 20090113
  Receipt Date: 20090109
  Transmission Date: 20090719
  Serious: Yes (Death)
  Sender: FDA-Public Use
  Company Number: PHHY2009BR00929

PATIENT
  Age: 85 Year
  Sex: Male

DRUGS (1)
  1. FORASEQ [Suspect]

REACTIONS (1)
  - DEATH [None]
